FAERS Safety Report 25719630 (Version 1)
Quarter: 2025Q3

REPORT INFORMATION
  Report Type: Report from Study
  Country: US (occurrence: US)
  Receive Date: 20250825
  Receipt Date: 20250825
  Transmission Date: 20251021
  Serious: Yes (Other)
  Sender: ACADIA PHARMACEUTICALS
  Company Number: US-ACADIA PHARMACEUTICALS INC.-ACA-2025-PIM-009463

PATIENT
  Sex: Female

DRUGS (15)
  1. NUPLAZID [Suspect]
     Active Substance: PIMAVANSERIN TARTRATE
     Indication: Parkinson^s disease
     Dosage: 34 MILLIGRAM, QD
     Route: 048
  2. QUETIAPINE [Suspect]
     Active Substance: QUETIAPINE
     Indication: Product used for unknown indication
     Route: 065
  3. VYALEV [FOSCARBIDOPA;FOSLEVODOPA] [Concomitant]
  4. BOTOX [Concomitant]
     Active Substance: ONABOTULINUMTOXINA
  5. CARBIDOPA\LEVODOPA [Concomitant]
     Active Substance: CARBIDOPA\LEVODOPA
  6. DONEPEZIL HYDROCHLORIDE [Concomitant]
     Active Substance: DONEPEZIL HYDROCHLORIDE
  7. AMANTADINE [Concomitant]
     Active Substance: AMANTADINE
  8. ACETAMINOPHEN [Concomitant]
     Active Substance: ACETAMINOPHEN
  9. RASAGILINE MESYLATE [Concomitant]
     Active Substance: RASAGILINE MESYLATE
  10. ESTRADIOL [Concomitant]
     Active Substance: ESTRADIOL
  11. MELATONIN [Concomitant]
     Active Substance: MELATONIN
  12. VITAMIN D3 [Concomitant]
     Active Substance: CHOLECALCIFEROL
  13. VITAMINS NOS [Concomitant]
     Active Substance: VITAMINS
  14. MIRABEGRON [Concomitant]
     Active Substance: MIRABEGRON
  15. IPRATROPIUM BROMIDE [Concomitant]
     Active Substance: IPRATROPIUM BROMIDE

REACTIONS (1)
  - Psychotic disorder [Unknown]
